FAERS Safety Report 5484722-X (Version None)
Quarter: 2007Q4

REPORT INFORMATION
  Report Type: 
  Country: None (occurrence: None)
  Receive Date: 20071010
  Receipt Date: 20070924
  Transmission Date: 20080405
  Serious: Yes (Hospitalization)
  Sender: FDA-Public Use
  Company Number: 8027151

PATIENT
  Age: 44 Year
  Sex: Male

DRUGS (1)
  1. KEPPRA [Suspect]
     Indication: COMPLEX PARTIAL SEIZURES
     Dosage: 1000 MG/D PO
     Route: 048
     Dates: end: 20070922

REACTIONS (3)
  - RASH [None]
  - SCAB [None]
  - TOXIC EPIDERMAL NECROLYSIS [None]
